FAERS Safety Report 7230976-9 (Version None)
Quarter: 2011Q1

REPORT INFORMATION
  Report Type: 
  Country: None (occurrence: None)
  Receive Date: 20110118
  Receipt Date: 20110117
  Transmission Date: 20110831
  Serious: Yes (Death)
  Sender: FDA-Public Use
  Company Number: DE-ABBOTT-10P-062-0692775-00

PATIENT
  Age: 84 Year
  Sex: Male
  Weight: 86 kg

DRUGS (2)
  1. BICALUTAMIDE [Concomitant]
     Indication: ANTIANDROGEN THERAPY
     Route: 048
  2. SIXANTONE [Suspect]
     Indication: PROSTATE CANCER
     Route: 058
     Dates: start: 20100616

REACTIONS (5)
  - PROSTATE CANCER [None]
  - CARDIAC FAILURE [None]
  - DIABETES MELLITUS [None]
  - FLANK PAIN [None]
  - CORONARY ARTERY DISEASE [None]
